FAERS Safety Report 23082481 (Version 2)
Quarter: 2023Q4

REPORT INFORMATION
  Report Type: Other
  Country: JP (occurrence: None)
  Receive Date: 20231019
  Receipt Date: 20231207
  Transmission Date: 20240110
  Serious: Yes (Hospitalization)
  Sender: FDA-Public Use
  Company Number: JP-ROCHE-3441079

PATIENT
  Age: 75 Year
  Sex: Female

DRUGS (1)
  1. RITUXIMAB [Suspect]
     Active Substance: RITUXIMAB
     Indication: Systemic lupus erythematosus
     Route: 041

REACTIONS (3)
  - Bronchopulmonary aspergillosis [Unknown]
  - Pneumonia bacterial [Unknown]
  - Off label use [Unknown]
